FAERS Safety Report 5121098-1 (Version None)
Quarter: 2006Q4

REPORT INFORMATION
  Report Type: 
  Country: None (occurrence: None)
  Receive Date: 20061005
  Receipt Date: 20060925
  Transmission Date: 20070319
  Serious: Yes (Other)
  Sender: FDA-Public Use
  Company Number: 2006AC01763

PATIENT
  Age: 73 Year
  Sex: Male

DRUGS (4)
  1. GEFITINIB [Suspect]
     Indication: ADENOSQUAMOUS CELL LUNG CANCER
     Route: 048
     Dates: start: 20040620, end: 20040801
  2. GEMCITABINE [Concomitant]
     Indication: ADENOSQUAMOUS CELL LUNG CANCER
     Dosage: 4 COURSES
     Dates: start: 20031201, end: 20040301
  3. CISPLATIN [Concomitant]
     Indication: ADENOSQUAMOUS CELL LUNG CANCER
     Dosage: 4 COURSES
     Dates: start: 20031201, end: 20040301
  4. DOCETAXEL [Concomitant]
     Indication: ADENOSQUAMOUS CELL LUNG CANCER
     Dates: start: 20040501

REACTIONS (5)
  - HYPERSENSITIVITY [None]
  - METABOLIC ACIDOSIS [None]
  - NEPHROPATHY TOXIC [None]
  - PNEUMONIA ASPIRATION [None]
  - RENAL FAILURE ACUTE [None]
